FAERS Safety Report 24845295 (Version 1)
Quarter: 2025Q1

REPORT INFORMATION
  Report Type: Spontaneous
  Country: US (occurrence: US)
  Receive Date: 20250115
  Receipt Date: 20250115
  Transmission Date: 20250408
  Serious: No
  Sender: BAYER HEALTHCARE PHARMACEUTICALS INC.
  Company Number: US-BAYER-2025A005868

PATIENT
  Age: 61 Year

DRUGS (1)
  1. GADAVIST [Suspect]
     Active Substance: GADOBUTROL
     Dates: start: 20241209, end: 20241209

REACTIONS (2)
  - Rash [None]
  - Erythema [None]

NARRATIVE: CASE EVENT DATE: 20241209
